FAERS Safety Report 14660037 (Version 1)
Quarter: 2018Q1

REPORT INFORMATION
  Report Type: Spontaneous
  Country: US (occurrence: US)
  Receive Date: 20180320
  Receipt Date: 20180320
  Transmission Date: 20180509
  Serious: Yes (Death, Other)
  Sender: FDA-Public Use
  Company Number: US-BAYER-2018-048044

PATIENT
  Age: 76 Year
  Sex: Female

DRUGS (1)
  1. ACETYLSALICYLIC ACID({=100 MG) [Suspect]
     Active Substance: ASPIRIN
     Dosage: UNK

REACTIONS (9)
  - Gastrointestinal haemorrhage [None]
  - Histiocytic sarcoma [None]
  - Gastric mucosal lesion [None]
  - Labelled drug-drug interaction medication error [None]
  - Death [Fatal]
  - Drug administration error [None]
  - Haematemesis [None]
  - Small intestinal obstruction [None]
  - Melaena [None]
